FAERS Safety Report 8006778-2 (Version None)
Quarter: 2011Q4

REPORT INFORMATION
  Report Type: 
  Country: None (occurrence: None)
  Receive Date: 20111227
  Receipt Date: 20111221
  Transmission Date: 20120403
  Serious: Yes (Death)
  Sender: FDA-Public Use
  Company Number: CN-BAYER-2011-123086

PATIENT

DRUGS (1)
  1. NEXAVAR [Suspect]

REACTIONS (2)
  - BACK PAIN [None]
  - DEATH [None]
